FAERS Safety Report 22343816 (Version 1)
Quarter: 2023Q2

REPORT INFORMATION
  Report Type: Spontaneous
  Country: US (occurrence: None)
  Receive Date: 20230518
  Receipt Date: 20230518
  Transmission Date: 20230721
  Serious: Yes (Disabling)
  Sender: FDA-Public Use
  Company Number: None

PATIENT
  Age: 50 Year
  Sex: Female
  Weight: 72 kg

DRUGS (1)
  1. BENZODIAZEPINE [Suspect]
     Active Substance: BENZODIAZEPINE
     Indication: Insomnia

REACTIONS (30)
  - Insomnia [None]
  - Night sweats [None]
  - Disturbance in attention [None]
  - Anxiety [None]
  - Dizziness [None]
  - Muscular weakness [None]
  - Arthralgia [None]
  - Pain in extremity [None]
  - Withdrawal syndrome [None]
  - General physical health deterioration [None]
  - Panic attack [None]
  - Tremor [None]
  - Muscle twitching [None]
  - Fatigue [None]
  - Nausea [None]
  - Amnesia [None]
  - Gait disturbance [None]
  - Temperature regulation disorder [None]
  - Tremor [None]
  - Gastrointestinal disorder [None]
  - Muscle spasms [None]
  - Paraesthesia [None]
  - Headache [None]
  - Vision blurred [None]
  - Electric shock sensation [None]
  - Neuralgia [None]
  - Pain [None]
  - Vibration syndrome [None]
  - Tinnitus [None]
  - Brief resolved unexplained event [None]

NARRATIVE: CASE EVENT DATE: 20221215
